FAERS Safety Report 8033379-2 (Version None)
Quarter: 2012Q1

REPORT INFORMATION
  Report Type: 
  Country: None (occurrence: None)
  Receive Date: 20120110
  Receipt Date: 20120104
  Transmission Date: 20120608
  Serious: Yes (Hospitalization)
  Sender: FDA-Public Use
  Company Number: PHEH2012US000607

PATIENT
  Sex: Female

DRUGS (13)
  1. LIPITOR [Concomitant]
     Dosage: 10 MG, QD
  2. REQUIP [Concomitant]
     Dosage: 4 MG, UNK
  3. PROPRANOLOL [Concomitant]
     Dosage: 40 MG, QD
  4. MAGNESIUM PHOSPHATE [Concomitant]
     Dosage: 400 MG, QD
  5. CIPROFLOXACIN [Concomitant]
     Dosage: 500 MG, BID
  6. OSCAL [Concomitant]
     Dosage: 600 MG, BID
  7. EXJADE [Suspect]
  8. AMLODIPINE [Concomitant]
     Dosage: 5 MG, BID
  9. VITAMIN D [Concomitant]
     Dosage: 2000 IU, UNK
  10. POTASSIUM CHLORIDE [Concomitant]
     Dosage: 20 MEQ, QD
  11. FOLIC ACID [Concomitant]
     Dosage: 1 MG, QD
  12. VESICARE [Concomitant]
     Dosage: 5 MG, UNK
  13. LACTINEX [Concomitant]

REACTIONS (11)
  - GLOMERULAR FILTRATION RATE DECREASED [None]
  - ESCHERICHIA SEPSIS [None]
  - BLOOD CREATININE INCREASED [None]
  - BLOOD CHLORIDE DECREASED [None]
  - ABDOMINAL PAIN [None]
  - BLOOD BILIRUBIN INCREASED [None]
  - BLOOD UREA INCREASED [None]
  - BLOOD MAGNESIUM DECREASED [None]
  - HAEMOLYTIC ANAEMIA [None]
  - UROSEPSIS [None]
  - BLOOD GLUCOSE INCREASED [None]
